FAERS Safety Report 6328545-8 (Version None)
Quarter: 2009Q3

REPORT INFORMATION
  Report Type: 
  Country: None (occurrence: None)
  Receive Date: 20090826
  Receipt Date: 20071009
  Transmission Date: 20100115
  Serious: Yes (Other)
  Sender: FDA-Public Use
  Company Number: US-ASTRAZENECA-2007UW16470

PATIENT
  Age: 55 Year
  Sex: Female
  Weight: 94.8 kg

DRUGS (18)
  1. SEROQUEL [Suspect]
     Indication: BIPOLAR DISORDER
     Dosage: 25MG-300MG
     Route: 048
     Dates: start: 20000714
  2. SEROQUEL [Suspect]
     Indication: TACHYPHRENIA
     Dosage: 25MG-300MG
     Route: 048
     Dates: start: 20000714
  3. SEROQUEL [Suspect]
     Route: 048
     Dates: start: 20050701, end: 20060101
  4. SEROQUEL [Suspect]
     Route: 048
     Dates: start: 20050701, end: 20060101
  5. ABILIFY [Concomitant]
  6. LAMICTAL [Concomitant]
  7. NEURONTIN [Concomitant]
  8. NEURONTIN [Concomitant]
     Dosage: 300MG THREE TIMES A DAY AND 1500MG AT NIGHT
     Route: 048
     Dates: start: 20000625
  9. CELEXA [Concomitant]
     Dosage: 40MG EVERY MORNING AND 20MG AT NOON
     Route: 048
     Dates: start: 20000625
  10. WELLBUTRIN [Concomitant]
     Dates: start: 20000625
  11. TRILAFON [Concomitant]
     Dates: start: 20000625
  12. EFFEXOR [Concomitant]
     Route: 048
     Dates: start: 20000714
  13. INDERAL [Concomitant]
  14. NORVASC [Concomitant]
     Route: 048
     Dates: start: 20000714
  15. CELEBREX [Concomitant]
     Dates: start: 20000504
  16. COZAAR [Concomitant]
     Route: 048
     Dates: start: 20031205
  17. LEVOXYL [Concomitant]
     Dosage: 125MCG-0.125MG, EVERY MORNING
     Route: 048
     Dates: start: 20040404
  18. ZESTRIL [Concomitant]
     Dates: start: 20000528

REACTIONS (5)
  - DIABETES MELLITUS [None]
  - DIABETIC NEUROPATHY [None]
  - NEUROPATHY PERIPHERAL [None]
  - POLYNEUROPATHY IDIOPATHIC PROGRESSIVE [None]
  - TYPE 2 DIABETES MELLITUS [None]
